FAERS Safety Report 18167637 (Version 1)
Quarter: 2020Q3

REPORT INFORMATION
  Report Type: Spontaneous
  Country: US (occurrence: US)
  Receive Date: 20200819
  Receipt Date: 20200819
  Transmission Date: 20201103
  Serious: Yes (Hospitalization, Other)
  Sender: FDA-Public Use
  Company Number: US-AUROBINDO-AUR-APL-2020-039318

PATIENT
  Age: 29 Year
  Sex: Female

DRUGS (11)
  1. TRAZODONE [Concomitant]
     Active Substance: TRAZODONE HYDROCHLORIDE
     Indication: SCHIZOAFFECTIVE DISORDER
     Dosage: 200 MILLIGRAM, ONCE A DAY
     Route: 065
  2. RISPERIDONE. [Concomitant]
     Active Substance: RISPERIDONE
     Indication: SCHIZOAFFECTIVE DISORDER
     Dosage: UNK, SLIGHTLY INCREASED
     Route: 065
  3. CYANOCOBALAMIN. [Concomitant]
     Active Substance: CYANOCOBALAMIN
     Indication: SUPPLEMENTATION THERAPY
     Dosage: UNK
     Route: 065
  4. QUETIAPINE. [Concomitant]
     Active Substance: QUETIAPINE
     Indication: SCHIZOAFFECTIVE DISORDER
     Dosage: 100 MILLIGRAM, ONCE A DAY (NIGHTLY)
     Route: 065
  5. COLECALCIFEROL [Concomitant]
     Active Substance: CHOLECALCIFEROL
     Indication: SUPPLEMENTATION THERAPY
     Dosage: UNK
     Route: 065
  6. RISPERIDONE. [Concomitant]
     Active Substance: RISPERIDONE
     Dosage: 4 MILLIGRAM, ONCE A DAY
     Route: 065
  7. ESCITALOPRAM [Suspect]
     Active Substance: ESCITALOPRAM OXALATE
     Dosage: 10 MILLIGRAM, ONCE A DAY
     Route: 065
  8. ESCITALOPRAM [Suspect]
     Active Substance: ESCITALOPRAM OXALATE
     Indication: SCHIZOAFFECTIVE DISORDER
     Dosage: 30 MILLIGRAM, ONCE A DAY
     Route: 065
  9. NALTREXONE [Concomitant]
     Active Substance: NALTREXONE
     Indication: SCHIZOAFFECTIVE DISORDER
     Dosage: 50 MILLIGRAM, ONCE A DAY
     Route: 065
  10. CLOZAPINE. [Concomitant]
     Active Substance: CLOZAPINE
     Indication: SCHIZOAFFECTIVE DISORDER
     Dosage: UNK (ON DAY 19)
     Route: 065
  11. QUETIAPINE. [Concomitant]
     Active Substance: QUETIAPINE
     Dosage: UNK (SLIGHTLY INCREASED)
     Route: 065

REACTIONS (2)
  - Affective disorder [Recovering/Resolving]
  - Condition aggravated [Recovering/Resolving]
